FAERS Safety Report 13615119 (Version 2)
Quarter: 2017Q2

REPORT INFORMATION
  Report Type: Report from Study
  Country: BR (occurrence: BR)
  Receive Date: 20170606
  Receipt Date: 20170621
  Transmission Date: 20170830
  Serious: Yes (Other)
  Sender: FDA-Public Use
  Company Number: BR-JNJFOC-20170603314

PATIENT
  Age: 32 Year
  Sex: Female
  Weight: 65 kg

DRUGS (3)
  1. VITAMIN D [Concomitant]
     Active Substance: CHOLECALCIFEROL
     Route: 065
  2. SIMPONI [Suspect]
     Active Substance: GOLIMUMAB
     Indication: ANKYLOSING SPONDYLITIS
     Route: 058
     Dates: start: 20170414
  3. NIMESULIDE [Concomitant]
     Active Substance: NIMESULIDE
     Route: 065

REACTIONS (2)
  - Influenza [Recovered/Resolved]
  - Uterine infection [Recovered/Resolved]

NARRATIVE: CASE EVENT DATE: 201705
